FAERS Safety Report 20195320 (Version 1)
Quarter: 2021Q4

REPORT INFORMATION
  Report Type: Spontaneous
  Country: PT (occurrence: PT)
  Receive Date: 20211216
  Receipt Date: 20211216
  Transmission Date: 20220303
  Serious: Yes (Death, Other)
  Sender: FDA-Public Use
  Company Number: PT-CARLSBAD-2021PTCTILIT00006

PATIENT
  Age: 66 Year
  Sex: Male

DRUGS (1)
  1. ACYCLOVIR [Suspect]
     Active Substance: ACYCLOVIR
     Indication: Herpes simplex
     Dosage: FOR 13 DAYS
     Route: 042

REACTIONS (4)
  - Hepatic encephalopathy [Fatal]
  - Urinary tract infection [Unknown]
  - Respiratory tract infection [Unknown]
  - Post procedural fistula [Unknown]
